FAERS Safety Report 8949583 (Version 1)
Quarter: 2012Q4

REPORT INFORMATION
  Report Type: 
  Country: SA (occurrence: SA)
  Receive Date: 20121206
  Receipt Date: 20121206
  Transmission Date: 20130627
  Serious: Yes (Death, Life-Threatening, Other)
  Sender: FDA-Public Use
  Company Number: SA-ROXANE LABORATORIES, INC.-2012-RO-02496RO

PATIENT
  Age: 61 Year
  Sex: Female

DRUGS (8)
  1. NAPROXEN [Suspect]
     Indication: ARTHRITIS
     Dosage: 1.5 g
  2. RANITIDINE [Suspect]
     Dosage: 500 mg
  3. ATORVASTATIN [Suspect]
     Dosage: 10 mg
  4. METFORMIN [Suspect]
     Dosage: 500 mg
  5. HYDROCHLOROTHIAZIDE\LISINOPRIL [Suspect]
  6. TRAMADOL [Suspect]
  7. ALLOPURINOL [Suspect]
     Dosage: 300 mg
  8. QUININE SULFATE [Suspect]
     Dosage: 100 mg

REACTIONS (9)
  - Toxic epidermal necrolysis [Fatal]
  - Rhabdomyolysis [Unknown]
  - Renal failure acute [Unknown]
  - Cardiac arrest [Unknown]
  - Multi-organ failure [Unknown]
  - Respiratory failure [Unknown]
  - Muscle necrosis [Unknown]
  - Disseminated intravascular coagulation [Unknown]
  - Skin necrosis [Unknown]
